FAERS Safety Report 18658788 (Version 2)
Quarter: 2021Q1

REPORT INFORMATION
  Report Type: Report from Study
  Country: US (occurrence: US)
  Receive Date: 20201224
  Receipt Date: 20210101
  Transmission Date: 20210419
  Serious: No
  Sender: FDA-Public Use
  Company Number: US-SA-2020SA366901

PATIENT

DRUGS (1)
  1. DUPILUMAB [Suspect]
     Active Substance: DUPILUMAB
     Indication: NASAL POLYPS
     Dosage: 300 MG, QOW
     Route: 058
     Dates: start: 20201108

REACTIONS (6)
  - Injection site pain [Not Recovered/Not Resolved]
  - Circumstance or information capable of leading to device use error [Unknown]
  - Incorrect dose administered by device [Unknown]
  - Injection site haemorrhage [Not Recovered/Not Resolved]
  - Injection site scab [Unknown]
  - Device leakage [Unknown]

NARRATIVE: CASE EVENT DATE: 20201108
